FAERS Safety Report 8535105-7 (Version None)
Quarter: 2012Q3

REPORT INFORMATION
  Report Type: 
  Country: None (occurrence: None)
  Receive Date: 20120724
  Receipt Date: 20120719
  Transmission Date: 20120928
  Serious: No
  Sender: FDA-Public Use
  Company Number: US-PFIZER INC-2012161842

PATIENT

DRUGS (1)
  1. RAPAMUNE [Suspect]
     Dosage: UNK
     Route: 048

REACTIONS (3)
  - PRODUCT CONTAINER ISSUE [None]
  - PRODUCT CONTAINER SEAL ISSUE [None]
  - POOR QUALITY DRUG ADMINISTERED [None]
